FAERS Safety Report 12090561 (Version 3)
Quarter: 2019Q2

REPORT INFORMATION
  Report Type: Spontaneous
  Country: US (occurrence: US)
  Receive Date: 20160218
  Receipt Date: 20190403
  Transmission Date: 20190711
  Serious: Yes (Death, Hospitalization, Other)
  Sender: FDA-Public Use
  Company Number: US-009507513-1602USA008224

PATIENT
  Sex: Male
  Weight: 83.1 kg

DRUGS (2)
  1. JANUMET [Suspect]
     Active Substance: METFORMIN HYDROCHLORIDE\SITAGLIPTIN PHOSPHATE
     Dosage: 50-500 MG
     Route: 048
     Dates: start: 20111230, end: 201211
  2. JANUMET XR [Suspect]
     Active Substance: METFORMIN HYDROCHLORIDE\SITAGLIPTIN PHOSPHATE
     Dosage: 100/1000 MG, QPM
     Route: 048
     Dates: end: 201211

REACTIONS (14)
  - Splenic vein thrombosis [Unknown]
  - Hyponatraemia [Recovering/Resolving]
  - Hypovolaemia [Unknown]
  - Diverticulum intestinal [Unknown]
  - Hepatic steatosis [Unknown]
  - Pericardial effusion [Recovered/Resolved]
  - Adenocarcinoma pancreas [Fatal]
  - Metastases to liver [Not Recovered/Not Resolved]
  - Ascites [Unknown]
  - Pulmonary mass [Not Recovered/Not Resolved]
  - Anaemia of chronic disease [Unknown]
  - Peripheral coldness [Unknown]
  - Constipation [Unknown]
  - Temperature intolerance [Unknown]

NARRATIVE: CASE EVENT DATE: 201210
